FAERS Safety Report 16227089 (Version 1)
Quarter: 2019Q2

REPORT INFORMATION
  Report Type: Spontaneous
  Country: US (occurrence: US)
  Receive Date: 20190423
  Receipt Date: 20190423
  Transmission Date: 20190711
  Serious: Yes (Other)
  Sender: FDA-Public Use
  Company Number: US-TEVA-2018-US-980587

PATIENT
  Age: 66 Year
  Sex: Male

DRUGS (2)
  1. MESNA. [Concomitant]
     Active Substance: MESNA
     Indication: SARCOMATOID CARCINOMA OF THE LUNG
     Dosage: 6 CYCLES
     Route: 065
  2. IFOSFAMIDE. [Suspect]
     Active Substance: IFOSFAMIDE
     Indication: SARCOMATOID CARCINOMA OF THE LUNG
     Dosage: 6 CYCLES
     Route: 065

REACTIONS (1)
  - Neutropenia [Unknown]
